FAERS Safety Report 14535690 (Version 1)
Quarter: 2018Q1

REPORT INFORMATION
  Report Type: Spontaneous
  Country: US (occurrence: US)
  Receive Date: 20180214
  Receipt Date: 20180214
  Transmission Date: 20180509
  Serious: Yes (Hospitalization)
  Sender: FDA-Public Use
  Company Number: None

PATIENT
  Age: 67 Year
  Sex: Male
  Weight: 77 kg

DRUGS (2)
  1. CONTRAST [Concomitant]
     Active Substance: UNSPECIFIED INGREDIENT
  2. PEMBROLIZUMAB. [Suspect]
     Active Substance: PEMBROLIZUMAB
     Indication: NON-SMALL CELL LUNG CANCER
     Dosage: OTHER FREQUENCY:Q 3 WEEKS;?
     Route: 042
     Dates: start: 20170601, end: 20171221

REACTIONS (1)
  - Nephritis [None]

NARRATIVE: CASE EVENT DATE: 20180207
